FAERS Safety Report 4332760-2 (Version None)
Quarter: 2004Q1

REPORT INFORMATION
  Report Type: 
  Country: None (occurrence: None)
  Receive Date: 20040330
  Receipt Date: 20040218
  Transmission Date: 20041129
  Serious: Yes (Hospitalization)
  Sender: FDA-Public Use
  Company Number: 2004UW03790

PATIENT
  Age: 13 Year
  Sex: Male
  Weight: 44 kg

DRUGS (2)
  1. ACCOLATE [Suspect]
     Indication: ASTHMA
     Dosage: 10 MG QD PO
     Route: 048
     Dates: start: 20000101
  2. VITAMIN B COMPLEX CAP [Concomitant]

REACTIONS (1)
  - CONVULSION [None]
